FAERS Safety Report 5865715-7 (Version None)
Quarter: 2008Q3

REPORT INFORMATION
  Report Type: 
  Country: None (occurrence: None)
  Receive Date: 20080829
  Receipt Date: 20080818
  Transmission Date: 20090109
  Serious: Yes (Life-Threatening, Hospitalization)
  Sender: FDA-Public Use
  Company Number: JP-ROCHE-578993

PATIENT
  Sex: Female
  Weight: 58 kg

DRUGS (5)
  1. XELODA [Suspect]
     Indication: COLON CANCER
     Dosage: DRUG REPORTED AS: XELODA 300. 2 WEEKS ADMINISTRATION FOLLOWED BY 1 WEEK REST.
     Route: 048
     Dates: start: 20080614, end: 20080727
  2. XELODA [Suspect]
     Route: 048
     Dates: start: 20080728, end: 20080728
  3. PYDOXAL [Concomitant]
     Route: 048
     Dates: start: 20080606
  4. MAGLAX [Concomitant]
     Route: 048
     Dates: start: 20080606
  5. LANSOPRAZOLE [Concomitant]
     Route: 048
     Dates: start: 20080606

REACTIONS (4)
  - CARDIO-RESPIRATORY ARREST [None]
  - ELECTROCARDIOGRAM QT PROLONGED [None]
  - PALMAR-PLANTAR ERYTHRODYSAESTHESIA SYNDROME [None]
  - VENTRICULAR FIBRILLATION [None]
